FAERS Safety Report 6310921-0 (Version None)
Quarter: 2009Q3

REPORT INFORMATION
  Report Type: 
  Country: None (occurrence: None)
  Receive Date: 20090812
  Receipt Date: 20090728
  Transmission Date: 20100115
  Serious: Yes (Hospitalization)
  Sender: FDA-Public Use
  Company Number: IDA-00238

PATIENT
  Age: 71 Year
  Sex: Male

DRUGS (1)
  1. INDERAL [Suspect]
     Dosage: ORAL FORMULATION: TABLET
     Route: 048

REACTIONS (1)
  - HEPATIC FUNCTION ABNORMAL [None]
